FAERS Safety Report 7007702-1 (Version None)
Quarter: 2010Q3

REPORT INFORMATION
  Report Type: 
  Country: None (occurrence: None)
  Receive Date: 20100922
  Receipt Date: 20100810
  Transmission Date: 20110219
  Serious: Yes (Death, Life-Threatening, Other)
  Sender: FDA-Public Use
  Company Number: US-BAXTER-2009BH018383

PATIENT
  Age: 9 Month
  Sex: Female

DRUGS (38)
  1. HEPARIN SODIUM INJECTION [Suspect]
     Indication: INTRAVENOUS CATHETER MANAGEMENT
     Route: 042
     Dates: start: 20070224
  2. HEPARIN SODIUM INJECTION [Suspect]
     Indication: PARENTERAL NUTRITION
     Route: 042
     Dates: start: 20070224
  3. HEPARIN SODIUM INJECTION [Suspect]
     Route: 042
     Dates: start: 20070225, end: 20071114
  4. HEPARIN SODIUM INJECTION [Suspect]
     Route: 042
     Dates: start: 20070225, end: 20071114
  5. HEPARIN SODIUM INJECTION [Suspect]
     Route: 042
     Dates: start: 20071101, end: 20071201
  6. HEPARIN SODIUM INJECTION [Suspect]
     Route: 042
     Dates: start: 20071101, end: 20071201
  7. HEPARIN SODIUM INJECTION [Suspect]
     Route: 042
     Dates: start: 20070226, end: 20070302
  8. HEPARIN SODIUM INJECTION [Suspect]
     Route: 042
     Dates: start: 20070226, end: 20070302
  9. HEPARIN SODIUM INJECTION [Suspect]
     Route: 042
     Dates: start: 20070401, end: 20070501
  10. HEPARIN SODIUM INJECTION [Suspect]
     Route: 042
     Dates: start: 20070401, end: 20070501
  11. HEPARIN SODIUM INJECTION [Suspect]
     Route: 042
     Dates: start: 20070501, end: 20071201
  12. HEPARIN SODIUM INJECTION [Suspect]
     Route: 042
     Dates: start: 20070501, end: 20071201
  13. HEPARIN SODIUM INJECTION [Suspect]
     Route: 042
     Dates: start: 20071101, end: 20071207
  14. HEPARIN SODIUM INJECTION [Suspect]
     Route: 042
     Dates: start: 20071101, end: 20071207
  15. HEPARIN SODIUM INJECTION [Suspect]
     Route: 042
     Dates: start: 20071012
  16. HEPARIN SODIUM INJECTION [Suspect]
     Route: 042
     Dates: start: 20071012
  17. TOPIRAMATE [Concomitant]
     Indication: PRODUCT USED FOR UNKNOWN INDICATION
     Route: 065
  18. FERROUS SULFATE [Concomitant]
     Indication: PRODUCT USED FOR UNKNOWN INDICATION
     Route: 065
  19. FOLIC ACID [Concomitant]
     Indication: PRODUCT USED FOR UNKNOWN INDICATION
     Route: 065
  20. FAT EMULSIONS [Concomitant]
     Indication: PRODUCT USED FOR UNKNOWN INDICATION
     Route: 065
  21. TPN ELECTROLYTES IN PLASTIC CONTAINER [Concomitant]
     Indication: PRODUCT USED FOR UNKNOWN INDICATION
     Route: 042
  22. CIPROFLOXACIN [Concomitant]
     Indication: PRODUCT USED FOR UNKNOWN INDICATION
     Route: 065
  23. GLUTAMINE [Concomitant]
     Indication: PRODUCT USED FOR UNKNOWN INDICATION
     Route: 048
  24. RIFAXIMIN [Concomitant]
     Indication: PRODUCT USED FOR UNKNOWN INDICATION
     Route: 065
  25. SUCRALFATE [Concomitant]
     Indication: PRODUCT USED FOR UNKNOWN INDICATION
     Route: 065
  26. NOVOSEVEN [Concomitant]
     Indication: PRODUCT USED FOR UNKNOWN INDICATION
     Route: 065
  27. ZINC OXIDE [Concomitant]
     Indication: PRODUCT USED FOR UNKNOWN INDICATION
     Route: 065
  28. MARCAINE                                /USA/ [Concomitant]
     Indication: PRODUCT USED FOR UNKNOWN INDICATION
     Route: 065
  29. AMPHOTERICINE B, LIPOSOME [Concomitant]
     Indication: PRODUCT USED FOR UNKNOWN INDICATION
     Route: 065
  30. LIDOCAINE [Concomitant]
     Indication: PRODUCT USED FOR UNKNOWN INDICATION
     Route: 065
  31. AMIKACIN [Concomitant]
     Indication: PRODUCT USED FOR UNKNOWN INDICATION
     Route: 065
  32. MEROPENEM [Concomitant]
     Indication: PRODUCT USED FOR UNKNOWN INDICATION
     Route: 065
  33. SILVER NITRATE [Concomitant]
     Indication: PRODUCT USED FOR UNKNOWN INDICATION
     Route: 061
  34. ACTIGALL [Concomitant]
     Indication: PRODUCT USED FOR UNKNOWN INDICATION
     Route: 048
  35. CAFFEINE [Concomitant]
     Indication: PRODUCT USED FOR UNKNOWN INDICATION
     Route: 042
     Dates: start: 20070301, end: 20070301
  36. BACITRACIN [Concomitant]
     Indication: PRODUCT USED FOR UNKNOWN INDICATION
     Route: 047
  37. VANCOMYCIN [Concomitant]
     Indication: PRODUCT USED FOR UNKNOWN INDICATION
     Route: 042
  38. MEROPENEM [Concomitant]
     Route: 042

REACTIONS (20)
  - ABDOMINAL ADHESIONS [None]
  - BILIARY CIRRHOSIS [None]
  - CEREBRAL HAEMATOMA [None]
  - CEREBRAL HAEMORRHAGE [None]
  - CEREBRAL ISCHAEMIA [None]
  - CHOLESTASIS [None]
  - COAGULOPATHY [None]
  - CONVULSION [None]
  - HYPERSENSITIVITY [None]
  - JAUNDICE [None]
  - LEFT VENTRICULAR HYPERTROPHY [None]
  - NEUTROPENIA [None]
  - PULMONARY CONGESTION [None]
  - PULMONARY OEDEMA [None]
  - RESPIRATORY ARREST [None]
  - SEPSIS [None]
  - SHORT-BOWEL SYNDROME [None]
  - SPLENOMEGALY [None]
  - SUBDURAL HAEMATOMA [None]
  - THROMBOCYTOPENIA [None]
